FAERS Safety Report 20071481 (Version 2)
Quarter: 2021Q4

REPORT INFORMATION
  Report Type: Spontaneous
  Country: US (occurrence: US)
  Receive Date: 20211115
  Receipt Date: 20211123
  Transmission Date: 20220303
  Serious: No
  Sender: FDA-Public Use
  Company Number: US-NOVARTISTESTPH-NVSC2021US260781

PATIENT
  Sex: Female

DRUGS (4)
  1. HYCAMTIN [Suspect]
     Active Substance: TOPOTECAN HYDROCHLORIDE
     Indication: Lung neoplasm malignant
     Dosage: 2 DF (2 CAPSULES)
     Route: 048
     Dates: start: 20211028
  2. HYCAMTIN [Suspect]
     Active Substance: TOPOTECAN HYDROCHLORIDE
     Dosage: 3 DF (3 CAPSULES)
     Route: 048
     Dates: start: 20211028
  3. HYCAMTIN [Suspect]
     Active Substance: TOPOTECAN HYDROCHLORIDE
     Dosage: 0.5 MG (1 THROUGH 5 OF 21 DAY CYCLE)
     Route: 048
     Dates: start: 202110
  4. HYCAMTIN [Suspect]
     Active Substance: TOPOTECAN HYDROCHLORIDE
     Dosage: 3 MG (1 THROUGH 5 OF 21 DAY CYCLE)
     Route: 048
     Dates: start: 202110

REACTIONS (1)
  - Fatigue [Unknown]
